FAERS Safety Report 20782883 (Version 2)
Quarter: 2022Q2

REPORT INFORMATION
  Report Type: Spontaneous
  Country: US (occurrence: None)
  Receive Date: 20220504
  Receipt Date: 20220520
  Transmission Date: 20220721
  Serious: No
  Sender: FDA-Public Use
  Company Number: 2022A138625

PATIENT
  Age: 66 Year
  Sex: Female
  Weight: 107.5 kg

DRUGS (1)
  1. SAPHNELO [Suspect]
     Active Substance: ANIFROLUMAB-FNIA
     Indication: Systemic lupus erythematosus
     Route: 041
     Dates: start: 20211028

REACTIONS (8)
  - Muscular weakness [Not Recovered/Not Resolved]
  - Cyst [Not Recovered/Not Resolved]
  - Pain [Not Recovered/Not Resolved]
  - COVID-19 [Recovered/Resolved]
  - Atrial fibrillation [Recovered/Resolved]
  - Heart rate abnormal [Recovered/Resolved]
  - Weight increased [Not Recovered/Not Resolved]
  - Disease progression [Unknown]

NARRATIVE: CASE EVENT DATE: 20210101
